FAERS Safety Report 23981187 (Version 1)
Quarter: 2024Q2

REPORT INFORMATION
  Report Type: Spontaneous
  Country: ES (occurrence: ES)
  Receive Date: 20240617
  Receipt Date: 20240617
  Transmission Date: 20240715
  Serious: Yes (Death, Hospitalization)
  Sender: FDA-Public Use
  Company Number: ES-ROCHE-2952685

PATIENT
  Age: 78 Year
  Sex: Male
  Weight: 68 kg

DRUGS (28)
  1. CARBOPLATIN [Suspect]
     Active Substance: CARBOPLATIN
     Indication: Non-small cell lung cancer metastatic
     Dosage: 444.44 MG, EVERY 3 WEEKS
     Route: 042
  2. CARBOPLATIN [Suspect]
     Active Substance: CARBOPLATIN
     Dosage: 376.47 MG, EVERY 3 WEEKS
     Route: 042
     Dates: start: 20210614
  3. PEMETREXED [Suspect]
     Active Substance: PEMETREXED
     Indication: Non-small cell lung cancer metastatic
     Dosage: 875 MG, EVERY 3 WEEKS
     Route: 042
  4. PEMETREXED [Suspect]
     Active Substance: PEMETREXED
     Dosage: 890 MG, EVERY 3 WEEKS
     Route: 042
     Dates: start: 20210614
  5. PEMBROLIZUMAB [Suspect]
     Active Substance: PEMBROLIZUMAB
     Indication: Non-small cell lung cancer metastatic
     Dosage: 200 ML, EVERY 3 WEEKS
     Route: 042
     Dates: start: 20210614
  6. PEMBROLIZUMAB [Suspect]
     Active Substance: PEMBROLIZUMAB
     Dosage: UNK
  7. PLACEBO [Suspect]
     Active Substance: PLACEBO
     Indication: Non-small cell lung cancer metastatic
     Dosage: DATE OF MOST RECENT DOSE OF STUDY DRUG PRIOR TO AE AND SAE ONSET: 20OCT2021
     Route: 042
     Dates: start: 20210614
  8. FOLIC ACID [Concomitant]
     Active Substance: FOLIC ACID
     Dosage: 400 UG, 1X/DAY
     Dates: start: 20210511
  9. LINAGLIPTIN [Concomitant]
     Active Substance: LINAGLIPTIN
     Indication: Diabetes mellitus
     Dosage: 5 MG, 1X/DAY
     Dates: start: 2012
  10. NOVORAPID [Concomitant]
     Active Substance: INSULIN ASPART
     Indication: Diabetes mellitus
     Dosage: 1 IU, 1X/DAY
     Dates: start: 20211104, end: 20211130
  11. QUETIAPINE [Concomitant]
     Active Substance: QUETIAPINE
     Indication: Prophylaxis
     Dosage: 25 MG, 1X/DAY
     Dates: start: 20211114, end: 20211129
  12. ATORVASTATIN [Concomitant]
     Active Substance: ATORVASTATIN
     Indication: Hypercholesterolaemia
     Dosage: 20 MG, 1X/DAY
     Dates: start: 20211104, end: 20211114
  13. INSULIN GLARGINE [Concomitant]
     Active Substance: INSULIN GLARGINE
     Indication: Diabetes mellitus
     Dosage: 300 IU, 1X/DAY
     Dates: start: 2019
  14. FUROSEMIDE [Concomitant]
     Active Substance: FUROSEMIDE
     Indication: Prophylaxis
     Dosage: 20 MG
     Dates: start: 20211114, end: 20211125
  15. SIMVASTATIN [Concomitant]
     Active Substance: SIMVASTATIN
     Indication: Hypercholesterolaemia
     Dosage: 20 MG, 1X/DAY
     Dates: start: 2005
  16. ASPIRIN [Concomitant]
     Active Substance: ASPIRIN
     Dosage: 100 MG, 1X/DAY
     Dates: start: 2017
  17. RAMIPRIL [Concomitant]
     Active Substance: RAMIPRIL
     Indication: Hypertension
     Dosage: 5 MG, 1X/DAY
     Dates: start: 2017
  18. CHLORPROMAZINE [Concomitant]
     Active Substance: CHLORPROMAZINE
     Indication: Prophylaxis
     Dosage: 25 MG, 1X/DAY
     Dates: start: 20211120, end: 20211130
  19. INSULIN NOS [Concomitant]
     Active Substance: INSULIN NOS
     Indication: Diabetes mellitus
     Dosage: 50 IU, 1X/DAY
     Dates: start: 20211107, end: 20211114
  20. TOUJEO [Concomitant]
     Active Substance: INSULIN GLARGINE
     Indication: Diabetes mellitus
     Dosage: 16 IU, 1X/DAY
     Dates: start: 20211104, end: 20211114
  21. TOUJEO [Concomitant]
     Active Substance: INSULIN GLARGINE
     Dosage: 12 IU, 1X/DAY
     Dates: start: 20211123, end: 20211201
  22. LORAZEPAM [Concomitant]
     Active Substance: LORAZEPAM
     Indication: Prophylaxis
     Dosage: 1 MG
     Dates: start: 20211104, end: 20211114
  23. OMEPRAZOLE [Concomitant]
     Active Substance: DONEPEZIL HYDROCHLORIDE\OMEPRAZOLE\OMEPRAZOLE MAGNESIUM
     Dosage: 40 MG, 1X/DAY
     Dates: start: 20211126, end: 20211201
  24. OMEPRAZOLE [Concomitant]
     Active Substance: DONEPEZIL HYDROCHLORIDE\OMEPRAZOLE\OMEPRAZOLE MAGNESIUM
     Dosage: 20 MG, 1X/DAY
     Dates: start: 20211104, end: 20211119
  25. OMEPRAZOLE [Concomitant]
     Active Substance: DONEPEZIL HYDROCHLORIDE\OMEPRAZOLE\OMEPRAZOLE MAGNESIUM
     Dosage: 40 MG, 1X/DAY
     Dates: start: 2005
  26. OMEPRAZOLE [Concomitant]
     Active Substance: DONEPEZIL HYDROCHLORIDE\OMEPRAZOLE\OMEPRAZOLE MAGNESIUM
     Dosage: 100 MG, 1X/DAY
     Dates: start: 20211120, end: 20211121
  27. OMEPRAZOLE [Concomitant]
     Active Substance: DONEPEZIL HYDROCHLORIDE\OMEPRAZOLE\OMEPRAZOLE MAGNESIUM
     Dosage: 40 MG, FREQ:.5 D;
     Dates: start: 20211122, end: 20211125
  28. CIANOCOBALAMINA [Concomitant]
     Indication: Anaemia prophylaxis
     Dosage: 1 MG, 1X/DAY
     Dates: start: 20211117, end: 20211117

REACTIONS (1)
  - Interstitial lung disease [Fatal]

NARRATIVE: CASE EVENT DATE: 20211104
